FAERS Safety Report 6647301-4 (Version None)
Quarter: 2010Q1

REPORT INFORMATION
  Report Type: 
  Country: None (occurrence: None)
  Receive Date: 20100323
  Receipt Date: 20100315
  Transmission Date: 20100710
  Serious: No
  Sender: FDA-Public Use
  Company Number: B0624811A

PATIENT
  Sex: Female
  Weight: 63 kg

DRUGS (1)
  1. VALTREX [Suspect]
     Indication: ORAL HERPES
     Dosage: 500MG PER DAY
     Route: 048
     Dates: start: 20100105

REACTIONS (12)
  - BLOOD CREATININE INCREASED [None]
  - BLOOD POTASSIUM INCREASED [None]
  - BLOOD UREA INCREASED [None]
  - BLOOD URIC ACID INCREASED [None]
  - C-REACTIVE PROTEIN INCREASED [None]
  - DIZZINESS [None]
  - GLOMERULAR FILTRATION RATE DECREASED [None]
  - HEADACHE [None]
  - NAUSEA [None]
  - NERVOUS SYSTEM DISORDER [None]
  - OVERDOSE [None]
  - SOMNOLENCE [None]
